FAERS Safety Report 4504815-0 (Version None)
Quarter: 2004Q4

REPORT INFORMATION
  Report Type: 
  Country: None (occurrence: None)
  Receive Date: 20040927
  Receipt Date: 20040708
  Transmission Date: 20050328
  Serious: No
  Sender: FDA-Public Use
  Company Number: USA040772099

PATIENT
  Age: 45 Year
  Sex: Female
  Weight: 59 kg

DRUGS (3)
  1. STRATTERA [Suspect]
     Indication: ATTENTION DEFICIT/HYPERACTIVITY DISORDER
     Dosage: 40 MG DAY
     Dates: start: 20031001
  2. SOY SEED [Concomitant]
  3. ST JOHN'S WORT [Concomitant]

REACTIONS (8)
  - AGGRESSION [None]
  - FALL [None]
  - IRRITABILITY [None]
  - LIMB INJURY [None]
  - MOOD SWINGS [None]
  - PARANOIA [None]
  - SCREAMING [None]
  - SUICIDAL IDEATION [None]
